FAERS Safety Report 6282856-3 (Version None)
Quarter: 2009Q3

REPORT INFORMATION
  Report Type: 
  Country: None (occurrence: None)
  Receive Date: 20090724
  Receipt Date: 20090721
  Transmission Date: 20100115
  Serious: Yes (Hospitalization)
  Sender: FDA-Public Use
  Company Number: US-GENENTECH-287237

PATIENT
  Age: 59 Year
  Sex: Male
  Weight: 83.9 kg

DRUGS (6)
  1. BEVACIZUMAB [Suspect]
     Indication: MALIGNANT MELANOMA
     Dosage: 10 MG/KG, DAYS 1+15
     Route: 042
     Dates: start: 20090415
  2. BEVACIZUMAB [Suspect]
     Dosage: 880 MG, UNK
     Route: 042
     Dates: start: 20090709
  3. ABRAXANE [Suspect]
     Indication: MALIGNANT MELANOMA
     Dosage: 100 MG/M2, DAYS1,8,15
     Route: 042
     Dates: start: 20090415
  4. ABRAXANE [Suspect]
     Dosage: 160 MG, UNK
     Route: 042
     Dates: start: 20090709
  5. CARBOPLATIN [Suspect]
     Indication: MALIGNANT MELANOMA
     Dosage: 6 AUC, DAY 1
     Route: 042
     Dates: start: 20090415
  6. CARBOPLATIN [Suspect]
     Dosage: 430 MG, UNK
     Route: 042
     Dates: start: 20090625

REACTIONS (2)
  - PANCREATITIS [None]
  - PLEURAL EFFUSION [None]
